FAERS Safety Report 21044649 (Version 1)
Quarter: 2022Q3

REPORT INFORMATION
  Report Type: Spontaneous
  Country: ES (occurrence: ES)
  Receive Date: 20220705
  Receipt Date: 20220705
  Transmission Date: 20221027
  Serious: Yes (Life-Threatening, Hospitalization)
  Sender: FDA-Public Use
  Company Number: None

PATIENT
  Age: 34 Year
  Sex: Female

DRUGS (4)
  1. CLONAZEPAM [Suspect]
     Active Substance: CLONAZEPAM
     Indication: Intentional overdose
     Dosage: 15 G, ONCE/SINGLE
     Route: 065
     Dates: start: 20220515, end: 20220515
  2. QUETIAPINE FUMARATE [Suspect]
     Active Substance: QUETIAPINE FUMARATE
     Indication: Intentional overdose
     Dosage: 8 G, ONCE/SINGLE
     Route: 065
     Dates: start: 20220515, end: 20220515
  3. TOPIRAMATE [Concomitant]
     Active Substance: TOPIRAMATE
     Indication: Borderline personality disorder
     Dosage: 400 MG, QD
     Route: 065
     Dates: start: 200909
  4. OXCARBAZEPINE [Concomitant]
     Active Substance: OXCARBAZEPINE
     Indication: Borderline personality disorder
     Dosage: 900 MG, QD
     Route: 065
     Dates: start: 20210623

REACTIONS (2)
  - Depressed level of consciousness [Recovered/Resolved]
  - Intentional overdose [Recovered/Resolved]

NARRATIVE: CASE EVENT DATE: 20220515
